FAERS Safety Report 8840189 (Version 1)
Quarter: 2012Q4

REPORT INFORMATION
  Report Type: 
  Country: IT (occurrence: IT)
  Receive Date: 20121015
  Receipt Date: 20121015
  Transmission Date: 20130627
  Serious: Yes (Hospitalization)
  Sender: FDA-Public Use
  Company Number: IT-ROCHE-1145044

PATIENT
  Age: 1 Year
  Sex: Male

DRUGS (3)
  1. DIAZEPAM [Suspect]
     Indication: CONVULSIVE THRESHOLD LOWERED
     Route: 054
     Dates: start: 20120825, end: 20120826
  2. FENOBARBITAL [Suspect]
     Indication: CONVULSIVE THRESHOLD LOWERED
     Route: 048
     Dates: start: 20120828, end: 20120915
  3. TRIMETHOPRIM AND SULFAMETHOXAZOLE [Suspect]
     Indication: URINARY TRACT INFECTION
     Route: 048
     Dates: start: 20120831, end: 20120908

REACTIONS (6)
  - Blister [Recovering/Resolving]
  - Oedema peripheral [Recovering/Resolving]
  - Rash maculo-papular [Recovering/Resolving]
  - Scab [Recovering/Resolving]
  - Skin exfoliation [Recovering/Resolving]
  - Pruritus generalised [Recovering/Resolving]
